FAERS Safety Report 18664075 (Version 1)
Quarter: 2020Q4

REPORT INFORMATION
  Report Type: Spontaneous
  Country: US (occurrence: US)
  Receive Date: 20201225
  Receipt Date: 20201225
  Transmission Date: 20210114
  Serious: No
  Sender: FDA-Public Use
  Company Number: US-LUPIN PHARMACEUTICALS INC.-2020-08754

PATIENT
  Sex: Female
  Weight: 44.9 kg

DRUGS (1)
  1. LEVONORGESTREL AND ETHINYL ESTRADIOL TABLETS USP 0.1 MG/0.02 MG [Suspect]
     Active Substance: ETHINYL ESTRADIOL\LEVONORGESTREL
     Indication: ORAL CONTRACEPTION
     Dosage: 0.1 MG/0.02 MG, QD
     Route: 048

REACTIONS (3)
  - Menorrhagia [Unknown]
  - Circumstance or information capable of leading to medication error [Unknown]
  - Polymenorrhoea [Unknown]
